FAERS Safety Report 6084296-9 (Version None)
Quarter: 2009Q1

REPORT INFORMATION
  Report Type: 
  Country: None (occurrence: None)
  Receive Date: 20090219
  Receipt Date: 20060206
  Transmission Date: 20090719
  Serious: Yes (Death)
  Sender: FDA-Public Use
  Company Number: FR-PFIZER INC-2008153051

PATIENT

DRUGS (4)
  1. FARMORUBICIN [Suspect]
     Indication: GASTRIC CANCER
     Dosage: UNIT DOSE: 92MG/DAY
     Route: 042
     Dates: start: 20060124, end: 20060124
  2. CISPLATIN [Suspect]
     Indication: GASTRIC CANCER
     Dosage: UNIT DOSE: 110MG/DAY
     Route: 042
     Dates: start: 20060124, end: 20060124
  3. CAPECITABINE [Suspect]
     Indication: GASTRIC CANCER
     Dosage: UNIT DOSE: 3500MG/24H
     Route: 048
     Dates: start: 20060125, end: 20060204
  4. ATENOLOL [Concomitant]
     Indication: ARRHYTHMIA SUPRAVENTRICULAR
     Dosage: UNIT DOSE: 25MG/24H
     Route: 048
     Dates: end: 20060204

REACTIONS (1)
  - CARDIAC ARREST [None]
